FAERS Safety Report 24095311 (Version 1)
Quarter: 2024Q3

REPORT INFORMATION
  Report Type: Spontaneous
  Country: US (occurrence: US)
  Receive Date: 20240716
  Receipt Date: 20240716
  Transmission Date: 20241017
  Serious: Yes (Death, Other)
  Sender: STRIDES
  Company Number: US-STRIDES ARCOLAB LIMITED-2024SP008490

PATIENT

DRUGS (6)
  1. TACROLIMUS [Suspect]
     Active Substance: TACROLIMUS
     Indication: Product used for unknown indication
     Dosage: UNK
     Route: 064
  2. AZATHIOPRINE [Suspect]
     Active Substance: AZATHIOPRINE
     Indication: Product used for unknown indication
     Dosage: UNK, (PATIENT MOTHER RECEIVED 125MG)
     Route: 064
  3. INSULIN NOS [Suspect]
     Active Substance: INSULIN NOS
     Indication: Product used for unknown indication
     Dosage: UNK, (PATIENT MOTHER RECEIVED 5-10 UNITS/DAY IN THE FIRST TRIMESTER)
     Route: 064
  4. INSULIN NOS [Suspect]
     Active Substance: INSULIN NOS
     Dosage: UNK, (PATIENT MOTHER RECEIVED 15-45 UNITS/DAY IN THE SECOND TRIMESTER)
     Route: 064
  5. INSULIN NOS [Suspect]
     Active Substance: INSULIN NOS
     Dosage: UNK, (PATIENT MOTHER RECEIVED 35-70 UNITS/DAY IN THE THIRD TRIMESTER)
     Route: 064
  6. ASPIRIN [Suspect]
     Active Substance: ASPIRIN
     Indication: Product used for unknown indication
     Dosage: UNK, (PATIENT MOTHER RECEIVED 81MG DAILY)
     Route: 064

REACTIONS (3)
  - Necrotising enterocolitis neonatal [Fatal]
  - Premature baby [Unknown]
  - Foetal exposure during pregnancy [Unknown]
